FAERS Safety Report 7474565-X (Version None)
Quarter: 2011Q2

REPORT INFORMATION
  Report Type: 
  Country: None (occurrence: None)
  Receive Date: 20110503
  Receipt Date: 20110418
  Transmission Date: 20111010
  Serious: Yes (Hospitalization)
  Sender: FDA-Public Use
  Company Number: 031140

PATIENT
  Sex: Female
  Weight: 63 kg

DRUGS (7)
  1. LACOSAMIDE [Suspect]
     Indication: PARTIAL SEIZURES
     Dosage: 200 MG BID,200 MG DOSE REDUCED, DAILY, ORAL
     Route: 048
     Dates: start: 20110101, end: 20110410
  2. LACOSAMIDE [Suspect]
     Indication: PARTIAL SEIZURES
     Dosage: 200 MG BID,200 MG DOSE REDUCED, DAILY, ORAL
     Route: 048
     Dates: start: 20110303, end: 20110101
  3. KEPPRA [Suspect]
     Indication: PARTIAL SEIZURES
     Dosage: 1500 MG BID ORAL
     Route: 048
     Dates: start: 20090101
  4. CALCIVIT D [Concomitant]
  5. ALENDRONIC ACID [Concomitant]
  6. MAGALDRAT [Concomitant]
  7. OMEPRAZOLE [Concomitant]

REACTIONS (3)
  - BLEPHAROSPASM [None]
  - DYSTONIA [None]
  - GAIT DISTURBANCE [None]
